FAERS Safety Report 17875696 (Version 9)
Quarter: 2024Q4

REPORT INFORMATION
  Report Type: Spontaneous
  Country: ES (occurrence: ES)
  Receive Date: 20200609
  Receipt Date: 20241030
  Transmission Date: 20250115
  Serious: Yes (Death, Hospitalization, Congenital Anomaly, Other)
  Sender: ROCHE
  Company Number: ES-ASPEN-GLO2020ES004602

PATIENT
  Age: 65 Year
  Sex: Female

DRUGS (11)
  1. MYCOPHENOLATE MOFETIL [Suspect]
     Active Substance: MYCOPHENOLATE MOFETIL
     Indication: Immunosuppressant drug therapy
     Route: 065
  2. MYCOPHENOLATE MOFETIL [Suspect]
     Active Substance: MYCOPHENOLATE MOFETIL
     Indication: Prophylaxis against transplant rejection
  3. FLUCONAZOLE [Suspect]
     Active Substance: FLUCONAZOLE
     Indication: Infection prophylaxis
     Route: 065
  4. ACYCLOVIR [Suspect]
     Active Substance: ACYCLOVIR
     Indication: Infection prophylaxis
     Route: 065
  5. FLUDARABINE PHOSPHATE [Suspect]
     Active Substance: FLUDARABINE PHOSPHATE
     Indication: Bone marrow conditioning regimen
     Route: 065
  6. GENOXAL [Suspect]
     Active Substance: CYCLOPHOSPHAMIDE
     Indication: Prophylaxis against graft versus host disease
     Route: 065
  7. BUSULFAN [Suspect]
     Active Substance: BUSULFAN
     Indication: Bone marrow conditioning regimen
     Route: 065
  8. LEVOFLOXACIN [Suspect]
     Active Substance: LEVOFLOXACIN
     Indication: Infection prophylaxis
     Dosage: 500 MG/DL
     Route: 065
  9. ENVARSUS XR [Suspect]
     Active Substance: TACROLIMUS
     Indication: Immunosuppressant drug therapy
     Route: 065
  10. ENVARSUS XR [Suspect]
     Active Substance: TACROLIMUS
     Indication: Prophylaxis against transplant rejection
  11. CYCLOPHOSPHAMIDE [Suspect]
     Active Substance: CYCLOPHOSPHAMIDE
     Indication: Prophylaxis against graft versus host disease
     Route: 065

REACTIONS (27)
  - Gastritis fungal [Fatal]
  - Septic embolus [Fatal]
  - Mucosal inflammation [Fatal]
  - Hypoxic-ischaemic encephalopathy [Fatal]
  - Pancreatitis necrotising [Fatal]
  - Arteritis infective [Fatal]
  - Disseminated mucormycosis [Fatal]
  - Haemodynamic instability [Fatal]
  - Cardio-respiratory arrest [Fatal]
  - Haemorrhage [Fatal]
  - Ischaemic stroke [Fatal]
  - Fat necrosis [Fatal]
  - Pulmonary infarction [Fatal]
  - Thrombocytopenia [Fatal]
  - Neutropenia [Fatal]
  - Respiratory failure [Fatal]
  - Epistaxis [Fatal]
  - Pulmonary embolism [Fatal]
  - Fungal infection [Fatal]
  - Infective thrombosis [Fatal]
  - Macroglossia [Fatal]
  - Laryngeal haematoma [Fatal]
  - Thrombotic cerebral infarction [Fatal]
  - Necrosis ischaemic [Fatal]
  - Cerebral fungal infection [Fatal]
  - Off label use [Unknown]
  - Pyrexia [Unknown]
